FAERS Safety Report 6044680-6 (Version None)
Quarter: 2009Q1

REPORT INFORMATION
  Report Type: 
  Country: None (occurrence: None)
  Receive Date: 20090120
  Receipt Date: 20090108
  Transmission Date: 20090719
  Serious: Yes (Other)
  Sender: FDA-Public Use
  Company Number: CA-PFIZER INC-2008151535

PATIENT

DRUGS (5)
  1. DETROL LA [Interacting]
     Indication: MICTURITION DISORDER
     Dosage: 4 MG, UNK
  2. ERYTHROMYCIN [Suspect]
     Indication: MICTURITION DISORDER
  3. FLOMAX [Interacting]
  4. ANALGESICS [Suspect]
  5. ALL OTHER THERAPEUTIC PRODUCTS [Suspect]
     Indication: MICTURITION DISORDER
     Dosage: 200 MG, UNK

REACTIONS (4)
  - DIVERTICULITIS [None]
  - DRUG INTERACTION [None]
  - MICTURITION URGENCY [None]
  - URINARY RETENTION [None]
